FAERS Safety Report 19330740 (Version 2)
Quarter: 2021Q2

REPORT INFORMATION
  Report Type: Report from Study
  Country: MX (occurrence: MX)
  Receive Date: 20210528
  Receipt Date: 20210613
  Transmission Date: 20210717
  Serious: Yes (Other)
  Sender: FDA-Public Use
  Company Number: NVSC2021MX115714

PATIENT
  Sex: Female
  Weight: 93 kg

DRUGS (1)
  1. EXFORGE HCT [Suspect]
     Active Substance: AMLODIPINE BESYLATE\HYDROCHLOROTHIAZIDE\VALSARTAN
     Indication: HYPERTENSION
     Dosage: 2 DF, QD
     Route: 048
     Dates: start: 2013

REACTIONS (3)
  - Diabetes mellitus [Recovering/Resolving]
  - Off label use [Unknown]
  - Varicose vein [Recovering/Resolving]

NARRATIVE: CASE EVENT DATE: 2016
